FAERS Safety Report 22219984 (Version 1)
Quarter: 2023Q2

REPORT INFORMATION
  Report Type: Spontaneous
  Country: US (occurrence: None)
  Receive Date: 20230415
  Receipt Date: 20230415
  Transmission Date: 20230721
  Serious: No
  Sender: FDA-Public Use
  Company Number: None

PATIENT
  Age: 20 Year
  Sex: Female
  Weight: 54.43 kg

DRUGS (2)
  1. NEXPLANON [Suspect]
     Active Substance: ETONOGESTREL
  2. Testosterone Cypionate 0.6ml weekly injection [Concomitant]

REACTIONS (1)
  - Dysmenorrhoea [None]

NARRATIVE: CASE EVENT DATE: 20230201
